FAERS Safety Report 6002025-1 (Version None)
Quarter: 2008Q4

REPORT INFORMATION
  Report Type: 
  Country: None (occurrence: None)
  Receive Date: 20081212
  Receipt Date: 20081202
  Transmission Date: 20090506
  Serious: Yes (Hospitalization)
  Sender: FDA-Public Use
  Company Number: DSU-2008-01960

PATIENT
  Age: 66 Year
  Sex: Female

DRUGS (14)
  1. EVOXAC [Suspect]
     Indication: SJOGREN'S SYNDROME
     Dosage: 2 TO 3 TIMES PER DAY, PER ORAL
     Route: 048
     Dates: start: 20041115
  2. TYLENOL (PARACETAMOL) PARACETAMOL [Concomitant]
  3. UNITHROID(LEVOTHYROXINE SODIUM) [Concomitant]
  4. LACTULOSE [Concomitant]
  5. LUVOX [Concomitant]
  6. KLONOPIN [Concomitant]
  7. PHENERGAN (PROMETHAZINE) [Concomitant]
  8. AMBIEN [Concomitant]
  9. PEPCID [Concomitant]
  10. ASPIRIN [Concomitant]
  11. FIORICET [Concomitant]
  12. SOMA [Concomitant]
  13. STOOL SOFTENER (DOCUSATE SODIUM) [Concomitant]
  14. TIMOLOL [Concomitant]

REACTIONS (2)
  - CORONARY ARTERY BYPASS [None]
  - DRUG INEFFECTIVE [None]
